FAERS Safety Report 7936315-X (Version None)
Quarter: 2011Q4

REPORT INFORMATION
  Report Type: 
  Country: None (occurrence: None)
  Receive Date: 20111123
  Receipt Date: 20111114
  Transmission Date: 20120403
  Serious: Yes (Other)
  Sender: FDA-Public Use
  Company Number: CA-ASTRAZENECA-2010SE17502

PATIENT
  Age: 63 Year
  Sex: Female

DRUGS (9)
  1. ATACAND [Suspect]
     Route: 048
  2. ATIVAN [Suspect]
     Route: 065
  3. PANTOPRAZOLE SODIUM [Concomitant]
     Route: 048
  4. FLUTICASONE FUROATE [Concomitant]
     Route: 055
  5. METOPROLOL TARTRATE [Suspect]
     Route: 048
  6. NORVASC [Suspect]
     Route: 048
     Dates: start: 20100412
  7. FLUTICASONE PROPIONATE [Concomitant]
  8. PANTOPRAZOLE [Concomitant]
  9. PULMICORT [Suspect]
     Route: 055

REACTIONS (15)
  - POLLAKIURIA [None]
  - DRUG INEFFECTIVE [None]
  - DEHYDRATION [None]
  - ARTHRALGIA [None]
  - DRY MOUTH [None]
  - HEADACHE [None]
  - ABDOMINAL PAIN UPPER [None]
  - FLATULENCE [None]
  - ABDOMINAL DISTENSION [None]
  - BACK PAIN [None]
  - ANXIETY [None]
  - INSOMNIA [None]
  - SYNCOPE [None]
  - DIZZINESS [None]
  - NAUSEA [None]
